FAERS Safety Report 6452858-2 (Version None)
Quarter: 2009Q4

REPORT INFORMATION
  Report Type: 
  Country: None (occurrence: None)
  Receive Date: 20091124
  Receipt Date: 20090115
  Transmission Date: 20100525
  Serious: No
  Sender: FDA-Public Use
  Company Number: US-ABBOTT-09P-163-0498428-00

PATIENT
  Sex: Female
  Weight: 70.37 kg

DRUGS (13)
  1. TRICOR [Suspect]
     Indication: BLOOD CHOLESTEROL INCREASED
     Route: 048
     Dates: start: 20080701
  2. TRICOR [Suspect]
     Indication: LIPIDS INCREASED
  3. FLONASE [Concomitant]
     Indication: DRUG USE FOR UNKNOWN INDICATION
  4. ZYRTEC [Concomitant]
     Indication: DRUG USE FOR UNKNOWN INDICATION
  5. LEXAPRO [Concomitant]
     Indication: DRUG USE FOR UNKNOWN INDICATION
  6. CLONAZEPAM [Concomitant]
     Indication: DRUG USE FOR UNKNOWN INDICATION
  7. DIOVAN [Concomitant]
     Indication: DRUG USE FOR UNKNOWN INDICATION
  8. DIAZIDE [Concomitant]
     Indication: DRUG USE FOR UNKNOWN INDICATION
  9. MULTIVITAMIN [Concomitant]
     Indication: DRUG USE FOR UNKNOWN INDICATION
  10. COD LIVER OIL [Concomitant]
     Indication: DRUG USE FOR UNKNOWN INDICATION
  11. FISH OIL [Concomitant]
     Indication: DRUG USE FOR UNKNOWN INDICATION
  12. CAL MAG [Concomitant]
     Indication: DRUG USE FOR UNKNOWN INDICATION
  13. ALLERGY SHOTS [Concomitant]
     Indication: DRUG USE FOR UNKNOWN INDICATION
     Route: 050

REACTIONS (4)
  - DRY SKIN [None]
  - ONYCHALGIA [None]
  - ONYCHOCLASIS [None]
  - TRICHORRHEXIS [None]
